FAERS Safety Report 6699306-5 (Version None)
Quarter: 2010Q2

REPORT INFORMATION
  Report Type: 
  Country: None (occurrence: None)
  Receive Date: 20100427
  Receipt Date: 20100415
  Transmission Date: 20101027
  Serious: Yes (Other)
  Sender: FDA-Public Use
  Company Number: GR-ELI_LILLY_AND_COMPANY-GR201004005560

PATIENT
  Age: 53 Year
  Sex: Female
  Weight: 80 kg

DRUGS (8)
  1. CYMBALTA [Suspect]
     Indication: PAIN
     Dosage: 60 MG, DAILY (1/D)
     Route: 048
     Dates: start: 20100401, end: 20100401
  2. TENORMIN [Concomitant]
     Indication: HYPERTENSION
     Dosage: 50 MG, DAILY (1/D)
     Route: 048
  3. MICARDIS [Concomitant]
     Indication: HYPERTENSION
     Dosage: 80 MG, DAILY (1/D)
     Route: 048
  4. SOLOSA [Concomitant]
     Indication: DIABETES MELLITUS
     Dosage: 4 MG, DAILY (1/D)
     Route: 048
  5. NOVOMIX                            /01475801/ [Concomitant]
     Indication: DIABETES MELLITUS
     Dosage: UNK, DAILY (1/D)
     Route: 058
  6. MEDROL [Concomitant]
     Indication: PSORIATIC ARTHROPATHY
     Dosage: (HALF A TABLET OF 16 MG) 8 MG, DAILY (1/D)
     Route: 048
  7. ARAVA [Concomitant]
     Indication: PSORIATIC ARTHROPATHY
     Dosage: 10 MG, DAILY (1/D)
     Route: 048
  8. XANAX [Concomitant]
     Indication: INSOMNIA
     Dosage: 0.5 MG, 2/D
     Route: 048

REACTIONS (3)
  - BLOOD PRESSURE INCREASED [None]
  - DYSPNOEA [None]
  - TREMOR [None]
